FAERS Safety Report 15736440 (Version 1)
Quarter: 2018Q4

REPORT INFORMATION
  Report Type: Spontaneous
  Country: IT (occurrence: IT)
  Receive Date: 20181218
  Receipt Date: 20181218
  Transmission Date: 20190205
  Serious: Yes (Hospitalization, Other)
  Sender: FDA-Public Use
  Company Number: IT-SAKK-2018SA339360AA

PATIENT
  Age: 74 Year
  Sex: Male

DRUGS (5)
  1. APIXABAN [Suspect]
     Active Substance: APIXABAN
     Dosage: 5 MG, BID
  2. ATORVASTATIN [Suspect]
     Active Substance: ATORVASTATIN
     Dosage: 20 MG, QD
  3. ENOXAPARIN SODIUM. [Suspect]
     Active Substance: ENOXAPARIN SODIUM
  4. METOPROLOL SALT NOT SPECIFIED [Suspect]
     Active Substance: METOPROLOL
     Dosage: 25 MG, BID
  5. ENALAPRIL MALEATE. [Suspect]
     Active Substance: ENALAPRIL MALEATE
     Dosage: 5 MG, QD

REACTIONS (6)
  - Cough [Recovering/Resolving]
  - Traumatic haematoma [Unknown]
  - Blood pressure decreased [Unknown]
  - Shock haemorrhagic [Unknown]
  - Syncope [Recovered/Resolved]
  - Supraventricular tachycardia [Unknown]
